FAERS Safety Report 5145000-1 (Version None)
Quarter: 2006Q4

REPORT INFORMATION
  Report Type: 
  Country: None (occurrence: None)
  Receive Date: 20061107
  Receipt Date: 20061027
  Transmission Date: 20070319
  Serious: Yes (Other)
  Sender: FDA-Public Use
  Company Number: US-BRISTOL-MYERS SQUIBB COMPANY-13564976

PATIENT
  Age: 72 Year
  Sex: Female
  Weight: 81 kg

DRUGS (2)
  1. QUESTRAN [Suspect]
     Indication: DIARRHOEA
     Route: 048
     Dates: start: 20060301
  2. LISINOPRIL [Concomitant]

REACTIONS (1)
  - PULMONARY OEDEMA [None]
